FAERS Safety Report 5819988-7 (Version None)
Quarter: 2008Q3

REPORT INFORMATION
  Report Type: 
  Country: None (occurrence: None)
  Receive Date: 20080721
  Receipt Date: 20080716
  Transmission Date: 20090109
  Serious: Yes (Death)
  Sender: FDA-Public Use
  Company Number: 2008SP013024

PATIENT
  Age: 56 Year
  Sex: Male

DRUGS (5)
  1. INTRON A [Suspect]
     Indication: MALIGNANT MELANOMA STAGE III
     Dosage: 20 MIU; 40 MIU; QD; IV; 10 MIU; TIW; SC
     Route: 042
     Dates: end: 20080421
  2. INTRON A [Suspect]
     Indication: MALIGNANT MELANOMA STAGE III
     Dosage: 20 MIU; 40 MIU; QD; IV; 10 MIU; TIW; SC
     Route: 042
     Dates: start: 20080421, end: 20080516
  3. INTRON A [Suspect]
     Indication: MALIGNANT MELANOMA STAGE III
     Dosage: 20 MIU; 40 MIU; QD; IV; 10 MIU; TIW; SC
     Route: 042
     Dates: end: 20080601
  4. PEPCID [Concomitant]
  5. VICODIN [Concomitant]

REACTIONS (1)
  - DEATH [None]
